FAERS Safety Report 8123831-3 (Version None)
Quarter: 2012Q1

REPORT INFORMATION
  Report Type: 
  Country: None (occurrence: None)
  Receive Date: 20120209
  Receipt Date: 20120131
  Transmission Date: 20120608
  Serious: Yes (Other)
  Sender: FDA-Public Use
  Company Number: US-ASTRAZENECA-2012SE06475

PATIENT
  Sex: Male

DRUGS (1)
  1. PRILOSEC OTC [Suspect]
     Route: 048
     Dates: end: 20120127

REACTIONS (8)
  - FACE OEDEMA [None]
  - PHARYNGEAL OEDEMA [None]
  - RASH [None]
  - LIP SWELLING [None]
  - EYELID OEDEMA [None]
  - URTICARIA [None]
  - SHOCK [None]
  - DYSPNOEA [None]
